FAERS Safety Report 13616359 (Version 1)
Quarter: 2017Q2

REPORT INFORMATION
  Report Type: Spontaneous
  Country: US (occurrence: US)
  Receive Date: 20170606
  Receipt Date: 20170606
  Transmission Date: 20170830
  Serious: Yes (Other)
  Sender: FDA-Public Use
  Company Number: PHHY2017US078347

PATIENT
  Age: 86 Year
  Sex: Male

DRUGS (1)
  1. ACETYLSALICYLIC ACID [Suspect]
     Active Substance: ASPIRIN
     Indication: PRODUCT USED FOR UNKNOWN INDICATION
     Route: 065

REACTIONS (6)
  - Abdominal mass [Unknown]
  - Cough [Unknown]
  - Abdominal wall haematoma [Unknown]
  - Abdominal pain [Unknown]
  - Extravasation [Unknown]
  - Ecchymosis [Unknown]
